FAERS Safety Report 19985112 (Version 1)
Quarter: 2021Q4

REPORT INFORMATION
  Report Type: Spontaneous
  Country: AT (occurrence: AT)
  Receive Date: 20211021
  Receipt Date: 20211021
  Transmission Date: 20220303
  Serious: Yes (Death, Other)
  Sender: FDA-Public Use
  Company Number: AT-GILEAD-2021-0553432

PATIENT
  Age: 70 Year
  Sex: Female

DRUGS (3)
  1. VEKLURY [Suspect]
     Active Substance: REMDESIVIR
     Indication: COVID-19
     Dosage: 200 MG LOADING DOSE
     Route: 042
  2. VEKLURY [Suspect]
     Active Substance: REMDESIVIR
     Dosage: 100 MG DAYS 2-5
     Route: 042
  3. AMBISOME [Suspect]
     Active Substance: AMPHOTERICIN B
     Indication: Product used for unknown indication
     Dosage: 800 MG
     Route: 042

REACTIONS (5)
  - Bronchopulmonary aspergillosis [Fatal]
  - COVID-19 [Fatal]
  - Klebsiella infection [Unknown]
  - Aspergillus infection [Unknown]
  - Aspergillus test positive [Unknown]
